FAERS Safety Report 5497362-3 (Version None)
Quarter: 2007Q4

REPORT INFORMATION
  Report Type: 
  Country: None (occurrence: None)
  Receive Date: 20071025
  Receipt Date: 20071015
  Transmission Date: 20080405
  Serious: Yes (Death)
  Sender: FDA-Public Use
  Company Number: US-AMGEN-KDL241628

PATIENT
  Sex: Female
  Weight: 54.5 kg

DRUGS (3)
  1. ENBREL [Suspect]
     Indication: RHEUMATOID ARTHRITIS
     Route: 058
     Dates: start: 20050113, end: 20070709
  2. SULFASALAZINE [Concomitant]
     Dates: start: 19900101, end: 20070326
  3. PLAQUENIL [Concomitant]
     Dates: start: 19900101, end: 20070326

REACTIONS (2)
  - ARTHRALGIA [None]
  - LUNG CANCER METASTATIC [None]
